FAERS Safety Report 4699815-4 (Version None)
Quarter: 2005Q2

REPORT INFORMATION
  Report Type: 
  Country: None (occurrence: None)
  Receive Date: 20050623
  Receipt Date: 20050616
  Transmission Date: 20051028
  Serious: Yes (Other)
  Sender: FDA-Public Use
  Company Number: 2005068905

PATIENT
  Sex: Female

DRUGS (2)
  1. LIPITOR [Suspect]
     Indication: BLOOD CHOLESTEROL INCREASED
     Dosage: 5 MG (1 IN 1 D), ORAL
     Route: 048
     Dates: start: 20040101, end: 20050106
  2. CELEBREX [Suspect]
     Indication: ILL-DEFINED DISORDER
     Dates: start: 20041001, end: 20040101

REACTIONS (10)
  - CARPAL TUNNEL SYNDROME [None]
  - DEPRESSION [None]
  - FEELING ABNORMAL [None]
  - LIMB INJURY [None]
  - MUSCLE DISORDER [None]
  - MUSCLE STRAIN [None]
  - PAIN IN EXTREMITY [None]
  - PANIC ATTACK [None]
  - STRESS FRACTURE [None]
  - THERAPY NON-RESPONDER [None]
